FAERS Safety Report 25079772 (Version 1)
Quarter: 2025Q1

REPORT INFORMATION
  Report Type: Spontaneous
  Country: FR (occurrence: FR)
  Receive Date: 20250314
  Receipt Date: 20250314
  Transmission Date: 20250409
  Serious: Yes (Other)
  Sender: ELI LILLY AND COMPANY
  Company Number: FR-ELI_LILLY_AND_COMPANY-FR202503002418

PATIENT
  Age: 69 Year
  Sex: Female

DRUGS (8)
  1. SELPERCATINIB [Suspect]
     Active Substance: SELPERCATINIB
     Indication: Lung adenocarcinoma
     Dosage: 80 MG, DAILY
     Route: 065
  2. GEMCITABINE HYDROCHLORIDE [Suspect]
     Active Substance: GEMCITABINE HYDROCHLORIDE
     Indication: Lung adenocarcinoma
     Route: 065
  3. PEMETREXED [Suspect]
     Active Substance: PEMETREXED
     Indication: Lung adenocarcinoma
     Route: 065
  4. CABOZANTINIB [Suspect]
     Active Substance: CABOZANTINIB
     Indication: Lung adenocarcinoma
     Route: 065
  5. OSIMERTINIB [Suspect]
     Active Substance: OSIMERTINIB
     Indication: Lung adenocarcinoma
     Route: 065
  6. OSIMERTINIB [Suspect]
     Active Substance: OSIMERTINIB
     Dosage: 80 MG, DAILY
     Route: 065
  7. TRAMETINIB [Suspect]
     Active Substance: TRAMETINIB
     Indication: Lung adenocarcinoma
     Dosage: 0.5 MG, DAILY
     Route: 065
  8. CARBOPLATIN [Suspect]
     Active Substance: CARBOPLATIN
     Indication: Lung adenocarcinoma
     Route: 065

REACTIONS (7)
  - Neutropenia [Unknown]
  - Malignant neoplasm progression [Unknown]
  - Diarrhoea [Unknown]
  - Visual impairment [Unknown]
  - Oedema [Unknown]
  - Hypertension [Unknown]
  - Oedema peripheral [Unknown]
